FAERS Safety Report 5794860-X (Version None)
Quarter: 2008Q2

REPORT INFORMATION
  Report Type: 
  Country: None (occurrence: None)
  Receive Date: 20080626
  Receipt Date: 20080611
  Transmission Date: 20081010
  Serious: Yes (Hospitalization, Disabling)
  Sender: FDA-Public Use
  Company Number: 2008001373

PATIENT
  Age: 40 Year
  Sex: Male

DRUGS (4)
  1. TARCEVA [Suspect]
     Indication: LUNG NEOPLASM MALIGNANT
     Dosage: (150 MG,QD), ORAL
     Route: 048
     Dates: start: 20080116
  2. MEPRONIZINE (MEPRONIZINE) [Concomitant]
  3. LORAZEPAM [Concomitant]
  4. DEXERYL(OSINEX) [Concomitant]

REACTIONS (5)
  - ANOREXIA [None]
  - ARTHRALGIA [None]
  - GENERAL PHYSICAL HEALTH DETERIORATION [None]
  - INSOMNIA [None]
  - MYALGIA [None]
